FAERS Safety Report 12249415 (Version 1)
Quarter: 2016Q2

REPORT INFORMATION
  Report Type: Spontaneous
  Country: FR (occurrence: FR)
  Receive Date: 20160408
  Receipt Date: 20160408
  Transmission Date: 20160815
  Serious: Yes (Hospitalization)
  Sender: FDA-Public Use
  Company Number: FR-SA-2016SA070213

PATIENT
  Age: 91 Year
  Sex: Female

DRUGS (8)
  1. LASILIX [Suspect]
     Active Substance: FUROSEMIDE
     Route: 048
     Dates: start: 201405, end: 20160129
  2. LEVOTHYROX [Concomitant]
     Active Substance: LEVOTHYROXINE
  3. KARDEGIC [Concomitant]
     Active Substance: ASPIRIN LYSINE
  4. NOVONORM [Concomitant]
     Active Substance: REPAGLINIDE
  5. ADENURIC [Concomitant]
     Active Substance: FEBUXOSTAT
  6. CARDENSIEL [Concomitant]
     Active Substance: BISOPROLOL FUMARATE
  7. SEROPLEX [Concomitant]
     Active Substance: ESCITALOPRAM OXALATE
  8. TAHOR [Concomitant]
     Active Substance: ATORVASTATIN CALCIUM

REACTIONS (3)
  - Acute kidney injury [Recovering/Resolving]
  - Hyperkalaemia [Recovering/Resolving]
  - Dehydration [Recovering/Resolving]

NARRATIVE: CASE EVENT DATE: 20160129
